FAERS Safety Report 25400650 (Version 1)
Quarter: 2025Q2

REPORT INFORMATION
  Report Type: Spontaneous
  Country: IT (occurrence: IT)
  Receive Date: 20250605
  Receipt Date: 20250605
  Transmission Date: 20250717
  Serious: Yes (Other)
  Sender: ORGANON
  Company Number: IT-ORGANON-O2505ITA004244

PATIENT
  Age: 27 Year
  Sex: Female

DRUGS (1)
  1. NEXPLANON [Suspect]
     Active Substance: ETONOGESTREL
     Route: 059
     Dates: start: 20240606

REACTIONS (4)
  - Vaginal haemorrhage [Not Recovered/Not Resolved]
  - Weight increased [Unknown]
  - Fluid retention [Unknown]
  - Skin striae [Unknown]

NARRATIVE: CASE EVENT DATE: 20241101
